FAERS Safety Report 5508196-5 (Version None)
Quarter: 2007Q4

REPORT INFORMATION
  Report Type: 
  Country: None (occurrence: None)
  Receive Date: 20071106
  Receipt Date: 20071101
  Transmission Date: 20080405
  Serious: Yes (Death)
  Sender: FDA-Public Use
  Company Number: RO-ABBOTT-07P-135-0423032-00

PATIENT
  Age: 41 Year
  Sex: Female
  Weight: 40 kg

DRUGS (3)
  1. KALETRA [Suspect]
     Indication: ACQUIRED IMMUNODEFICIENCY SYNDROME
     Route: 048
     Dates: end: 20070622
  2. KALETRA [Suspect]
     Indication: DRUG USE FOR UNKNOWN INDICATION
     Dates: start: 20030401
  3. LAMIVUDINE + ZIDOVUDINE [Concomitant]
     Indication: ACQUIRED IMMUNODEFICIENCY SYNDROME
     Route: 048
     Dates: start: 20030401, end: 20070622

REACTIONS (1)
  - PULMONARY TUBERCULOSIS [None]
